FAERS Safety Report 10210010 (Version 2)
Quarter: 2014Q2

REPORT INFORMATION
  Report Type: Spontaneous
  Country: US (occurrence: US)
  Receive Date: 20140602
  Receipt Date: 20140616
  Transmission Date: 20141212
  Serious: Yes (Hospitalization)
  Sender: FDA-Public Use
  Company Number: US-JNJFOC-20140513020

PATIENT
  Sex: Male
  Weight: 90.72 kg

DRUGS (2)
  1. RISPERDAL [Suspect]
     Indication: PRODUCT USED FOR UNKNOWN INDICATION
     Route: 048
     Dates: start: 2006, end: 2012
  2. DEPAKOTE [Concomitant]
     Indication: DRUG THERAPY
     Route: 048
     Dates: start: 1998

REACTIONS (3)
  - Investigation [Unknown]
  - Drug dose omission [Unknown]
  - Gynaecomastia [Not Recovered/Not Resolved]
